FAERS Safety Report 18641512 (Version 3)
Quarter: 2021Q1

REPORT INFORMATION
  Report Type: Report from Study
  Country: US (occurrence: US)
  Receive Date: 20201221
  Receipt Date: 20210209
  Transmission Date: 20210419
  Serious: Yes (Life-Threatening, Hospitalization, Other)
  Sender: FDA-Public Use
  Company Number: US-AMRYT PHARMACEUTICALS DAC-AEGR005054

PATIENT
  Age: 39 Year
  Sex: Male
  Weight: 88.44 kg

DRUGS (95)
  1. METRELEPTIN [Suspect]
     Active Substance: METRELEPTIN
     Dosage: 3.0 MILLIGRAM, QD
     Route: 058
     Dates: start: 20160627, end: 20160704
  2. METRELEPTIN [Suspect]
     Active Substance: METRELEPTIN
     Dosage: 7.25 MILLIGRAM, QD
     Route: 058
     Dates: start: 20161024, end: 20161030
  3. METRELEPTIN [Suspect]
     Active Substance: METRELEPTIN
     Dosage: 8.25 MILLIGRAM, QD
     Route: 058
     Dates: start: 20161121, end: 20161127
  4. SACUBITRIL;VALSARTAN [Concomitant]
     Active Substance: SACUBITRIL\VALSARTAN
     Indication: CARDIAC FAILURE CONGESTIVE
     Dosage: 51 MILLIGRAM, QD
     Route: 048
     Dates: start: 20180828, end: 20190925
  5. TORSEMIDE. [Concomitant]
     Active Substance: TORSEMIDE
     Dosage: 80 MILLIGRAM, QD
     Route: 048
     Dates: start: 20200922, end: 20200923
  6. METOPROLOL SUCCINATE. [Concomitant]
     Active Substance: METOPROLOL SUCCINATE
     Indication: HYPERTENSION
     Dosage: 100 MILLIGRAM, QD
     Route: 048
     Dates: start: 2017, end: 20190822
  7. DEXTROSE. [Concomitant]
     Active Substance: DEXTROSE
     Indication: IMPLANTABLE DEFIBRILLATOR INSERTION
     Dosage: 13 MILLILITER, QD
     Route: 042
     Dates: start: 20180726, end: 20180726
  8. METRELEPTIN [Suspect]
     Active Substance: METRELEPTIN
     Dosage: 3.25 MILLIGRAM, QD
     Route: 058
     Dates: start: 20160704, end: 20160710
  9. METRELEPTIN [Suspect]
     Active Substance: METRELEPTIN
     Dosage: 4.5 MILLIGRAM, QD
     Route: 058
     Dates: start: 20160808, end: 20160814
  10. METRELEPTIN [Suspect]
     Active Substance: METRELEPTIN
     Dosage: 4.75 MILLIGRAM, QD
     Route: 058
     Dates: start: 20160815, end: 20160821
  11. METRELEPTIN [Suspect]
     Active Substance: METRELEPTIN
     Dosage: 5.25 MILLIGRAM, QD
     Route: 058
     Dates: start: 20160829, end: 20160904
  12. METRELEPTIN [Suspect]
     Active Substance: METRELEPTIN
     Dosage: 5 MILLIGRAM, QOD
     Route: 058
     Dates: start: 20201208
  13. SPIRONOLACTONE. [Concomitant]
     Active Substance: SPIRONOLACTONE
     Indication: OEDEMA PERIPHERAL
     Dosage: 25 MILLIGRAM, BID
     Route: 048
     Dates: start: 20190108, end: 20190131
  14. SPIRONOLACTONE. [Concomitant]
     Active Substance: SPIRONOLACTONE
     Indication: HYPERTENSION
     Dosage: 25 MILLIGRAM, QD
     Route: 048
     Dates: start: 20190612, end: 20201202
  15. ACETAMINOPHEN. [Concomitant]
     Active Substance: ACETAMINOPHEN
     Indication: PRODUCT USED FOR UNKNOWN INDICATION
  16. ONDANSETRON [Concomitant]
     Active Substance: ONDANSETRON
     Indication: PRODUCT USED FOR UNKNOWN INDICATION
     Dosage: UNK
  17. SIMETHICONE (DIMETHICONE) [Concomitant]
     Active Substance: DIMETHICONE
     Indication: PRODUCT USED FOR UNKNOWN INDICATION
     Dosage: UNK
  18. WARFARIN [Concomitant]
     Active Substance: WARFARIN
     Indication: ATRIAL FIBRILLATION
     Dosage: 7.5 MILLIGRAM, QD
     Route: 048
     Dates: start: 20180315, end: 20180827
  19. WARFARIN [Concomitant]
     Active Substance: WARFARIN
     Dosage: 5 MILLIGRAM, QD
     Route: 048
     Dates: start: 20201103, end: 20201202
  20. FUROSEMIDE. [Concomitant]
     Active Substance: FUROSEMIDE
     Indication: CARDIAC FAILURE CONGESTIVE
     Dosage: 40 MILLIGRAM, BID
     Route: 042
     Dates: start: 20180107, end: 20180107
  21. FUROSEMIDE. [Concomitant]
     Active Substance: FUROSEMIDE
     Dosage: 40 MILLIGRAM, QD
     Route: 042
     Dates: start: 20180306, end: 20180312
  22. NIPRIDE [Concomitant]
     Active Substance: SODIUM NITROPRUSSIDE
     Indication: CARDIAC FAILURE CONGESTIVE
     Dosage: UNK
     Route: 042
     Dates: start: 20180306, end: 20180307
  23. AUGMENTIN [Concomitant]
     Active Substance: AMOXICILLIN\CLAVULANATE POTASSIUM
     Indication: CATHETERISATION CARDIAC
     Dosage: 1 DOSAGE FORM, BID
     Route: 048
     Dates: start: 20180823, end: 20180827
  24. AMIODARONE [Concomitant]
     Active Substance: AMIODARONE
     Dosage: 200 MILLIGRAM, QD
     Route: 048
     Dates: start: 20191004, end: 20200930
  25. METRELEPTIN [Suspect]
     Active Substance: METRELEPTIN
     Indication: ACQUIRED LIPOATROPHIC DIABETES
     Dosage: 2.75 MILLIGRAM, QD
     Route: 058
     Dates: start: 20160620, end: 20160626
  26. METRELEPTIN [Suspect]
     Active Substance: METRELEPTIN
     Dosage: 3.5 MILLIGRAM, QD
     Route: 058
     Dates: start: 20160711, end: 20160717
  27. METRELEPTIN [Suspect]
     Active Substance: METRELEPTIN
     Dosage: 5.5 MILLIGRAM, QD
     Route: 058
     Dates: start: 20160905, end: 20160911
  28. METRELEPTIN [Suspect]
     Active Substance: METRELEPTIN
     Dosage: 6.25 MILLIGRAM, QD
     Route: 058
     Dates: start: 20160926, end: 20161002
  29. METRELEPTIN [Suspect]
     Active Substance: METRELEPTIN
     Dosage: 9.25 MILLIGRAM, QD
     Route: 058
     Dates: start: 20161219, end: 20161221
  30. METRELEPTIN [Suspect]
     Active Substance: METRELEPTIN
     Dosage: 5 MILLIGRAM, QD
     Route: 058
     Dates: start: 20161222, end: 20201202
  31. DIGOXIN. [Concomitant]
     Active Substance: DIGOXIN
     Indication: ATRIAL FIBRILLATION
     Dosage: 125 MICROGRAM, BID
     Route: 048
     Dates: start: 20180108, end: 20201202
  32. SACUBITRIL;VALSARTAN [Concomitant]
     Active Substance: SACUBITRIL\VALSARTAN
     Indication: HYPERTENSION
     Dosage: 100 MILLIGRAM, QD
     Route: 048
     Dates: start: 2017, end: 20190822
  33. TORSEMIDE. [Concomitant]
     Active Substance: TORSEMIDE
     Indication: CARDIAC FAILURE CONGESTIVE
     Dosage: 20 MILLIGRAM, QD
     Route: 048
     Dates: start: 20180315, end: 20180827
  34. TORSEMIDE. [Concomitant]
     Active Substance: TORSEMIDE
     Dosage: 40 MILLIGRAM, QD
     Route: 048
     Dates: start: 20200924
  35. TRIMETHOBENZAMIDE [Concomitant]
     Active Substance: TRIMETHOBENZAMIDE
     Indication: PRODUCT USED FOR UNKNOWN INDICATION
     Dosage: UNK
  36. CO?ENZIME Q?10 [Concomitant]
     Indication: CARDIOMYOPATHY
     Dosage: 10 MILLIGRAM, QD
     Route: 048
     Dates: start: 201711
  37. OMEGA?3 FISH OIL [Concomitant]
     Active Substance: FISH OIL\OMEGA-3 FATTY ACIDS
     Indication: HYPERTRIGLYCERIDAEMIA
     Dosage: 1 GRAM, QD
     Route: 048
     Dates: start: 2017
  38. CIPRO [Concomitant]
     Active Substance: CIPROFLOXACIN HYDROCHLORIDE
     Indication: EAR INFECTION
     Dosage: 500 MILLIGRAM, QD
     Route: 048
     Dates: start: 20190816, end: 20190819
  39. BACTERIOSTATIC WATER [Concomitant]
     Active Substance: WATER
     Indication: PRODUCT USED FOR UNKNOWN INDICATION
  40. METRELEPTIN [Suspect]
     Active Substance: METRELEPTIN
     Dosage: 7 MILLIGRAM, QD
     Route: 058
     Dates: start: 20161017, end: 20161023
  41. METRELEPTIN [Suspect]
     Active Substance: METRELEPTIN
     Dosage: 9 MILLIGRAM, QD
     Route: 058
     Dates: start: 20161212, end: 20161218
  42. AZATHIOPRINE. [Concomitant]
     Active Substance: AZATHIOPRINE
     Dosage: 50 MILLIGRAM, QD
     Route: 048
     Dates: start: 20190725, end: 20190828
  43. BISOPROLOL [Concomitant]
     Active Substance: BISOPROLOL
     Indication: HYPERTENSION
     Dosage: 10 MILLIGRAM, QD
     Route: 048
     Dates: start: 20190822, end: 20201202
  44. HEPARIN [Concomitant]
     Active Substance: HEPARIN SODIUM
     Indication: CARDIAC FAILURE CONGESTIVE
     Dosage: 28 IU/KG/HR
     Route: 042
     Dates: start: 20180312, end: 20180312
  45. HYDRALAZINE [Concomitant]
     Active Substance: HYDRALAZINE HYDROCHLORIDE
     Indication: HYPERTENSION
     Dosage: 10 MILLIGRAM, TID
     Route: 048
     Dates: start: 20201116, end: 20201202
  46. MELATONIN [Concomitant]
     Active Substance: MELATONIN
     Indication: PRODUCT USED FOR UNKNOWN INDICATION
     Dosage: UNK
  47. TORSEMIDE. [Concomitant]
     Active Substance: TORSEMIDE
     Dosage: 60 MILLIGRAM, QD
     Route: 048
     Dates: start: 202012
  48. WARFARIN [Concomitant]
     Active Substance: WARFARIN
     Dosage: 5 MILLIGRAM, 6 X WEEK
     Route: 048
     Dates: start: 20180828, end: 20201102
  49. ATORVASTATIN [Concomitant]
     Active Substance: ATORVASTATIN
     Indication: HYPERTRIGLYCERIDAEMIA
     Dosage: 20 MILLIGRAM, QD
     Route: 048
     Dates: start: 20161223
  50. CEFAZOLIN [Concomitant]
     Active Substance: CEFAZOLIN
     Indication: IMPLANTABLE DEFIBRILLATOR INSERTION
     Dosage: 1 GRAM, QD
     Route: 042
     Dates: start: 20180726, end: 20180726
  51. GLUCAGON. [Concomitant]
     Active Substance: GLUCAGON
     Indication: HYPOGLYCAEMIA
     Dosage: 1 MILLIGRAM, PRN
     Route: 058
  52. ZINC. [Concomitant]
     Active Substance: ZINC
     Indication: PRODUCT USED FOR UNKNOWN INDICATION
  53. IRON [Concomitant]
     Active Substance: IRON
     Indication: PRODUCT USED FOR UNKNOWN INDICATION
     Route: 048
  54. VITAMIN C [Concomitant]
     Active Substance: ASCORBIC ACID
     Indication: PRODUCT USED FOR UNKNOWN INDICATION
  55. METRELEPTIN [Suspect]
     Active Substance: METRELEPTIN
     Dosage: 3.75 MILLIGRAM, QD
     Route: 058
     Dates: start: 20160718, end: 20160724
  56. METRELEPTIN [Suspect]
     Active Substance: METRELEPTIN
     Dosage: 5.75 MILLIGRAM, QD
     Route: 058
     Dates: start: 20160912, end: 20160918
  57. METRELEPTIN [Suspect]
     Active Substance: METRELEPTIN
     Dosage: 6.75 MILLIGRAM, QD
     Route: 058
     Dates: start: 20161010, end: 20161016
  58. METRELEPTIN [Suspect]
     Active Substance: METRELEPTIN
     Dosage: 7.5 MILLIGRAM, QD
     Route: 058
     Dates: start: 20161031, end: 20161106
  59. METRELEPTIN [Suspect]
     Active Substance: METRELEPTIN
     Dosage: 7.75 MILLIGRAM, QD
     Route: 058
     Dates: start: 20161107, end: 20161113
  60. ASPIRIN                            /00002701/ [Concomitant]
     Active Substance: ASPIRIN
     Indication: CARDIAC FAILURE CONGESTIVE
     Dosage: 81 MILLIGRAM, QD
     Dates: start: 20180315
  61. TORSEMIDE. [Concomitant]
     Active Substance: TORSEMIDE
     Dosage: 30 MILLIGRAM, QD
     Route: 048
     Dates: start: 20180828, end: 20190416
  62. WARFARIN [Concomitant]
     Active Substance: WARFARIN
     Dosage: 5 MILLIGRAM, ON SUN, MON, WED, THUR, FRI
     Route: 048
     Dates: start: 202012
  63. MAGNESIUM OXIDE. [Concomitant]
     Active Substance: MAGNESIUM OXIDE
     Indication: BLOOD MAGNESIUM DECREASED
     Dosage: 250 MILLIGRAM, QD
     Route: 048
     Dates: end: 20181024
  64. METRELEPTIN [Suspect]
     Active Substance: METRELEPTIN
     Dosage: 4.00 MILLIGRAM, QD
     Route: 058
     Dates: start: 20160725, end: 20160731
  65. METRELEPTIN [Suspect]
     Active Substance: METRELEPTIN
     Dosage: 8 MILLIGRAM, QD
     Route: 058
     Dates: start: 20161114, end: 20161120
  66. AZATHIOPRINE. [Concomitant]
     Active Substance: AZATHIOPRINE
     Indication: IMMUNOSUPPRESSION
     Dosage: 100 MILLIGRAM, QD
     Route: 048
     Dates: start: 20190829, end: 20201204
  67. AZATHIOPRINE. [Concomitant]
     Active Substance: AZATHIOPRINE
     Dosage: 50 MILLIGRAM, QD
     Route: 048
     Dates: start: 20201205
  68. BISOPROLOL [Concomitant]
     Active Substance: BISOPROLOL
     Dosage: 5 MILLIGRAM, QD
     Route: 048
  69. TORSEMIDE. [Concomitant]
     Active Substance: TORSEMIDE
     Dosage: 40 MILLIGRAM, QD
     Route: 048
     Dates: start: 20190417, end: 20200921
  70. FUROSEMIDE. [Concomitant]
     Active Substance: FUROSEMIDE
     Indication: OEDEMA PERIPHERAL
     Dosage: 40 MILLIGRAM, QD
     Route: 048
     Dates: start: 2016, end: 20181024
  71. LISINOPRIL. [Concomitant]
     Active Substance: LISINOPRIL
     Indication: HYPERTENSION
     Dosage: 10 MILLIGRAM, QD
     Route: 048
     Dates: end: 20181024
  72. POTASSIUM CHLORIDE. [Concomitant]
     Active Substance: POTASSIUM CHLORIDE
     Indication: BLOOD POTASSIUM DECREASED
     Dosage: 1 DOSAGE FORM, QD
     Route: 048
     Dates: end: 20181226
  73. AMIODARONE [Concomitant]
     Active Substance: AMIODARONE
     Indication: CARDIAC FAILURE CONGESTIVE
     Dosage: 400 MILLIGRAM, BID
     Route: 048
     Dates: start: 20190919, end: 20191003
  74. METRELEPTIN [Suspect]
     Active Substance: METRELEPTIN
     Dosage: 6.5 MILLIGRAM, QD
     Route: 058
     Dates: start: 20161003, end: 20161009
  75. METRELEPTIN [Suspect]
     Active Substance: METRELEPTIN
     Dosage: 8.75 MILLIGRAM, QD
     Route: 058
     Dates: start: 20161205, end: 20161211
  76. APIXABAN [Concomitant]
     Active Substance: APIXABAN
     Indication: CARDIAC FAILURE CONGESTIVE
     Dosage: 5 MILLIGRAM, BID
     Route: 048
     Dates: start: 20180108, end: 20180131
  77. LIDOCAINE?EPINEPHRINE [Concomitant]
     Active Substance: EPINEPHRINE\LIDOCAINE
     Indication: IMPLANTABLE DEFIBRILLATOR INSERTION
     Dosage: 1 DOSAGE FORM, QD
     Route: 030
     Dates: start: 20180726, end: 20180726
  78. PREDNISONE. [Concomitant]
     Active Substance: PREDNISONE
     Indication: PRURITUS
     Dosage: 10 MILLIGRAM, QD
     Route: 048
     Dates: start: 20200521, end: 202006
  79. VITAMIN D3 [Concomitant]
     Active Substance: CHOLECALCIFEROL
     Indication: PRODUCT USED FOR UNKNOWN INDICATION
  80. METRELEPTIN [Suspect]
     Active Substance: METRELEPTIN
     Indication: LIPODYSTROPHY ACQUIRED
     Dosage: 2.5 MILLIGRAM, QD
     Route: 058
     Dates: start: 20160613, end: 20160619
  81. METRELEPTIN [Suspect]
     Active Substance: METRELEPTIN
     Dosage: 4.25 MILLIGRAM, QD
     Route: 058
     Dates: start: 20160801, end: 20160807
  82. METRELEPTIN [Suspect]
     Active Substance: METRELEPTIN
     Dosage: 5 MILLIGRAM, QD
     Route: 058
     Dates: start: 20160822, end: 20160828
  83. METRELEPTIN [Suspect]
     Active Substance: METRELEPTIN
     Dosage: 6 MILLIGRAM, QD
     Route: 058
     Dates: start: 20160919, end: 20160925
  84. METRELEPTIN [Suspect]
     Active Substance: METRELEPTIN
     Dosage: 8.5 MILLIGRAM, QD
     Route: 058
     Dates: start: 20161128, end: 20161204
  85. INSULIN [Concomitant]
     Active Substance: INSULIN NOS
     Indication: DIABETES MELLITUS
     Dosage: 2000 INTERNATIONAL UNIT, QD, IN INSULIN PUMP
     Route: 058
  86. NYSTATIN. [Concomitant]
     Active Substance: NYSTATIN
     Indication: PRODUCT USED FOR UNKNOWN INDICATION
     Dosage: UNK
  87. SACUBITRIL;VALSARTAN [Concomitant]
     Active Substance: SACUBITRIL\VALSARTAN
     Dosage: 103 MILLIGRAM, BID
     Route: 048
     Dates: start: 20190926, end: 20201202
  88. SEVELAMER [Concomitant]
     Active Substance: SEVELAMER
     Indication: PRODUCT USED FOR UNKNOWN INDICATION
  89. WARFARIN [Concomitant]
     Active Substance: WARFARIN
     Dosage: 5 MILLIGRAM, 1 X WEEK
     Route: 048
     Dates: start: 20180828, end: 20201102
  90. WARFARIN [Concomitant]
     Active Substance: WARFARIN
     Dosage: 5 MILLIGRAM, ON TUES AND SAT
     Route: 048
     Dates: start: 202012
  91. CARVEDILOL. [Concomitant]
     Active Substance: CARVEDILOL
     Indication: CARDIAC FAILURE CONGESTIVE
     Dosage: 12.5 MILLIGRAM, BID
     Route: 048
     Dates: end: 20181024
  92. MILRINONE [Concomitant]
     Active Substance: MILRINONE
     Indication: CATHETERISATION CARDIAC
     Dosage: 0.2 MCG/KG/MIN
     Route: 042
     Dates: start: 20180306, end: 20180307
  93. DILAUDID [Concomitant]
     Active Substance: HYDROMORPHONE HYDROCHLORIDE
     Indication: EAR INFECTION
     Dosage: 4 MILLIGRAM, QD
     Route: 048
     Dates: start: 20190816, end: 20190816
  94. URSODIOL. [Concomitant]
     Active Substance: URSODIOL
     Indication: HEPATIC FIBROSIS
     Dosage: 500 MILLIGRAM, BID
     Route: 048
     Dates: start: 20200826, end: 20201228
  95. HUMULIN R [Concomitant]
     Active Substance: INSULIN HUMAN
     Indication: DIABETES MELLITUS
     Dosage: 2000 UNITS, QD VIA CONTINOUS PUMP

REACTIONS (15)
  - Insomnia [Not Recovered/Not Resolved]
  - Therapy interrupted [Unknown]
  - Dyspnoea exertional [Not Recovered/Not Resolved]
  - Cough [Unknown]
  - Sleep apnoea syndrome [Not Recovered/Not Resolved]
  - Hyperkalaemia [Recovered/Resolved]
  - Abdominal pain [Recovered/Resolved]
  - Cardiogenic shock [Recovered/Resolved]
  - Respiratory failure [Recovered/Resolved]
  - Haematoma [Recovered/Resolved]
  - Acute kidney injury [Recovered/Resolved]
  - Atrial fibrillation [Recovered/Resolved with Sequelae]
  - Pruritus [Recovered/Resolved]
  - Off label use [Unknown]
  - Product storage error [Unknown]

NARRATIVE: CASE EVENT DATE: 2020
